FAERS Safety Report 5585823-8 (Version None)
Quarter: 2007Q4

REPORT INFORMATION
  Report Type: 
  Country: None (occurrence: None)
  Receive Date: 20071205
  Receipt Date: 20070309
  Transmission Date: 20080405
  Serious: Yes (Other)
  Sender: FDA-Public Use
  Company Number: HQWYE614314MAR07

PATIENT
  Age: 65 Year
  Sex: Female
  Weight: 54.48 kg

DRUGS (2)
  1. EFFEXOR XR [Suspect]
     Dosage: ORAL
     Route: 048
  2. FLECAINIDE ACETATE [Concomitant]

REACTIONS (1)
  - ATRIAL FIBRILLATION [None]
